FAERS Safety Report 10306874 (Version 4)
Quarter: 2015Q4

REPORT INFORMATION
  Report Type: Report from Study
  Country: US (occurrence: US)
  Receive Date: 20140715
  Receipt Date: 20151011
  Transmission Date: 20160304
  Serious: Yes (Hospitalization, Other)
  Sender: FDA-Public Use
  Company Number: US-AMGEN-USASP2013086958

PATIENT
  Age: 74 Year
  Sex: Female

DRUGS (3)
  1. ENBREL [Suspect]
     Active Substance: ETANERCEPT
     Indication: RHEUMATOID ARTHRITIS
     Dosage: 50 MG, QWK
     Route: 065
     Dates: start: 2004
  2. ENBREL [Suspect]
     Active Substance: ETANERCEPT
     Dosage: UNK
     Route: 065
  3. ENBREL [Suspect]
     Active Substance: ETANERCEPT
     Dosage: UNK UNK, UNK
     Route: 065

REACTIONS (23)
  - Joint arthroplasty [Recovered/Resolved]
  - Bone graft [Unknown]
  - Eructation [Not Recovered/Not Resolved]
  - Fall [Not Recovered/Not Resolved]
  - Musculoskeletal pain [Not Recovered/Not Resolved]
  - Foot deformity [Unknown]
  - Finger deformity [Unknown]
  - Hand deformity [Unknown]
  - Dizziness [Not Recovered/Not Resolved]
  - Bone lesion excision [Recovered/Resolved]
  - Arthralgia [Recovered/Resolved]
  - Toe operation [Not Recovered/Not Resolved]
  - Balance disorder [Unknown]
  - Knee arthroplasty [Recovered/Resolved]
  - Psychiatric symptom [Not Recovered/Not Resolved]
  - Abdominal pain upper [Not Recovered/Not Resolved]
  - Limb operation [Unknown]
  - Cataract [Recovered/Resolved]
  - Hypertension [Recovered/Resolved]
  - Foot fracture [Recovered/Resolved]
  - Transplant failure [Not Recovered/Not Resolved]
  - Surgery [Unknown]
  - Injection site pain [Recovered/Resolved]

NARRATIVE: CASE EVENT DATE: 2014
